FAERS Safety Report 24617374 (Version 2)
Quarter: 2025Q1

REPORT INFORMATION
  Report Type: Report from Study
  Country: BR (occurrence: BR)
  Receive Date: 20241114
  Receipt Date: 20250123
  Transmission Date: 20250409
  Serious: Yes (Death)
  Sender: BIOGEN
  Company Number: BR-BIOGEN-2024BI01289744

PATIENT
  Sex: Female

DRUGS (1)
  1. TYSABRI [Suspect]
     Active Substance: NATALIZUMAB
     Indication: Multiple sclerosis
     Route: 050
     Dates: end: 202404

REACTIONS (4)
  - Septic shock [Fatal]
  - Pneumonia [Fatal]
  - Aspiration [Fatal]
  - Multiple sclerosis [Fatal]
